FAERS Safety Report 9414383 (Version 1)
Quarter: 2013Q3

REPORT INFORMATION
  Report Type: Spontaneous
  Country: US (occurrence: US)
  Receive Date: 20130723
  Receipt Date: 20130723
  Transmission Date: 20140515
  Serious: No
  Sender: FDA-Public Use
  Company Number: US-TEVA-365250USA

PATIENT
  Age: 67 Year
  Sex: Female
  Weight: 93.07 kg

DRUGS (16)
  1. GABITRIL [Suspect]
     Indication: SPINAL PAIN
     Dosage: 8 MILLIGRAM DAILY;
     Route: 048
     Dates: start: 20121002
  2. CYMBALTA [Concomitant]
     Indication: BACK PAIN
     Dosage: 60 MILLIGRAM DAILY;
     Route: 048
  3. ASA [Concomitant]
     Dosage: 81 MILLIGRAM DAILY;
     Route: 048
  4. AMLODIPINE [Concomitant]
     Indication: BLOOD PRESSURE
     Dosage: 10 MILLIGRAM DAILY;
     Route: 048
  5. NABUMETONE [Concomitant]
     Indication: AUTOIMMUNE DISORDER
     Dosage: 10000 MILLIGRAM DAILY;
     Route: 048
  6. SIMVASTATIN [Concomitant]
     Dosage: 10 MILLIGRAM DAILY;
     Route: 048
  7. FUROSEMIDE [Concomitant]
     Indication: BLOOD PRESSURE
     Dosage: 20 MILLIGRAM DAILY;
     Route: 048
  8. BENICAR [Concomitant]
     Indication: BLOOD PRESSURE
     Dosage: 40 MILLIGRAM DAILY;
     Route: 048
  9. POTASSIUM [Concomitant]
     Dosage: 10 MILLIEQUIVALENTS DAILY;
     Route: 048
  10. PANTOPRAZOLE [Concomitant]
     Dosage: 20 MILLIGRAM DAILY;
     Route: 048
  11. OMEGA 3 [Concomitant]
     Route: 048
  12. PREDNISONE [Concomitant]
     Indication: AUTOIMMUNE DISORDER
     Dosage: QOD
     Route: 048
  13. CLONIDINE HCL [Concomitant]
     Dosage: .2 MILLIGRAM DAILY;
     Route: 048
  14. FOLIC ACID [Concomitant]
     Dosage: 1 MILLIGRAM DAILY;
     Route: 048
  15. METHOTREXATE [Concomitant]
     Indication: AUTOIMMUNE DISORDER
     Dosage: .3571 MILLIGRAM DAILY; 10 TABS Q WEEK
     Route: 048
  16. SYNTHROID [Concomitant]
     Indication: HYPOTHYROIDISM
     Dosage: 175 MILLIGRAM DAILY;
     Route: 048

REACTIONS (2)
  - Drug ineffective [Not Recovered/Not Resolved]
  - Off label use [Unknown]
